FAERS Safety Report 5856177-4 (Version None)
Quarter: 2008Q3

REPORT INFORMATION
  Report Type: 
  Country: None (occurrence: None)
  Receive Date: 20080825
  Receipt Date: 20080821
  Transmission Date: 20090109
  Serious: Yes (Hospitalization, Other)
  Sender: FDA-Public Use
  Company Number: A0718457A

PATIENT
  Age: 49 Year
  Sex: Female
  Weight: 86.4 kg

DRUGS (4)
  1. AVANDIA [Suspect]
     Dosage: 2MG TWICE PER DAY
     Dates: start: 20050101, end: 20070122
  2. AVANDAMET [Suspect]
     Indication: DRUG USE FOR UNKNOWN INDICATION
     Dosage: .5TAB TWICE PER DAY
     Dates: start: 20050101, end: 20070122
  3. AVANDARYL [Suspect]
     Indication: DRUG USE FOR UNKNOWN INDICATION
     Dates: start: 20050825, end: 20070122
  4. PREDNISONE TAB [Concomitant]
     Dates: start: 20050702, end: 20050701

REACTIONS (2)
  - DECREASED ACTIVITY [None]
  - MYOCARDIAL INFARCTION [None]
